FAERS Safety Report 7457444-3 (Version None)
Quarter: 2011Q2

REPORT INFORMATION
  Report Type: 
  Country: None (occurrence: None)
  Receive Date: 20110504
  Receipt Date: 20110421
  Transmission Date: 20111010
  Serious: No
  Sender: FDA-Public Use
  Company Number: US-B.I. PHARMACEUTICALS,INC./RIDGEFIELD-2011-BP-03812BP

PATIENT
  Sex: Female

DRUGS (13)
  1. SYMBICORT [Concomitant]
     Indication: HYPERSENSITIVITY
     Dosage: 2 PUF
     Route: 055
     Dates: start: 20100101
  2. DIOVAN HCT [Concomitant]
     Indication: HYPERTENSION
     Route: 048
     Dates: start: 20060101
  3. ASPIRIN [Concomitant]
     Indication: AORTIC STENOSIS
     Route: 048
     Dates: start: 19850101
  4. SINGULAIR [Concomitant]
     Dosage: 10 MG
  5. DILTIAZEM HCL [Concomitant]
     Indication: HYPERTENSION
     Dosage: 180 MG
     Route: 048
     Dates: start: 20090101
  6. SIMVASTATIN [Concomitant]
     Dosage: 20 MG
  7. SYNTHROID [Concomitant]
     Indication: HYPOTHYROIDISM
     Dosage: 100 MCG
     Route: 048
     Dates: start: 19600101
  8. PRADAXA [Suspect]
     Indication: ATRIAL FIBRILLATION
     Dosage: 300 MG
     Route: 048
     Dates: start: 20110114
  9. FLUTICASONE PROPIONATE [Concomitant]
     Indication: HYPERSENSITIVITY
     Dosage: 2 PUF
     Route: 045
     Dates: start: 20101101
  10. GABAPENTIN [Concomitant]
     Indication: RESTLESS LEGS SYNDROME
     Dosage: 100 MG
     Route: 048
     Dates: start: 20060101
  11. ZOLPIDEM TARTRATE [Concomitant]
     Dosage: 5 MG
  12. ZYRTEC [Suspect]
     Indication: HYPERSENSITIVITY
     Dosage: 10 MG
     Route: 048
     Dates: start: 20101101
  13. ALLERGY SHOTS [Concomitant]
     Indication: HYPERSENSITIVITY
     Route: 030
     Dates: start: 19830101

REACTIONS (3)
  - FATIGUE [None]
  - SOMNOLENCE [None]
  - HYPERSOMNIA [None]
